FAERS Safety Report 6984669-3 (Version None)
Quarter: 2010Q3

REPORT INFORMATION
  Report Type: 
  Country: None (occurrence: None)
  Receive Date: 20100914
  Receipt Date: 20100914
  Transmission Date: 20110219
  Serious: Yes (Other)
  Sender: FDA-Public Use
  Company Number: None

PATIENT
  Age: 27 Year
  Sex: Male

DRUGS (1)
  1. CREST PROHEALTH MULTI-PROTECTION NIGHT MOUTHWASH [Suspect]
     Indication: DENTAL DISORDER PROPHYLAXIS
     Dates: start: 20100728, end: 20100729

REACTIONS (2)
  - AGEUSIA [None]
  - ORAL DISCOMFORT [None]
